FAERS Safety Report 19814261 (Version 13)
Quarter: 2022Q3

REPORT INFORMATION
  Report Type: Report from Study
  Country: US (occurrence: US)
  Receive Date: 20210909
  Receipt Date: 20220816
  Transmission Date: 20221027
  Serious: Yes (Other)
  Sender: FDA-Public Use
  Company Number: NVSC2021US205085

PATIENT
  Sex: Female

DRUGS (8)
  1. ENTRESTO [Suspect]
     Active Substance: SACUBITRIL\VALSARTAN
     Indication: Product used for unknown indication
     Dosage: 1 DF, BID(24/26 MG)
     Route: 048
  2. ENTRESTO [Suspect]
     Active Substance: SACUBITRIL\VALSARTAN
     Dosage: 0.5 DF, BID (24/26 MG)
     Route: 048
  3. ENTRESTO [Suspect]
     Active Substance: SACUBITRIL\VALSARTAN
     Dosage: UNK (SHE CUTS THE PILLS, 1/2 TAB IN AM AND 1/2 TAB IN PM
     Route: 065
  4. ENTRESTO [Suspect]
     Active Substance: SACUBITRIL\VALSARTAN
     Dosage: UNK (SHE IS NOW TAKING FULL TAB BID PER MD ORDER)
     Route: 065
  5. ENTRESTO [Suspect]
     Active Substance: SACUBITRIL\VALSARTAN
     Dosage: 0.5 DOSAGE FORM, BID
     Route: 048
  6. CAFFEINE [Suspect]
     Active Substance: CAFFEINE
     Indication: Product used for unknown indication
     Dosage: UNK
     Route: 065
  7. INSULIN NOS [Concomitant]
     Active Substance: INSULIN NOS
     Indication: Product used for unknown indication
     Dosage: UNK
     Route: 065
  8. FARXIGA [Concomitant]
     Active Substance: DAPAGLIFLOZIN PROPANEDIOL
     Indication: Product used for unknown indication
     Dosage: UNK
     Route: 065

REACTIONS (24)
  - Diabetes mellitus [Unknown]
  - Paraesthesia [Unknown]
  - Heart rate increased [Unknown]
  - Insomnia [Unknown]
  - COVID-19 [Unknown]
  - Fluid retention [Unknown]
  - Visual impairment [Unknown]
  - Hypokinesia [Unknown]
  - Illness [Unknown]
  - Hypoacusis [Not Recovered/Not Resolved]
  - Weight decreased [Unknown]
  - Breast enlargement [Unknown]
  - Weight increased [Recovering/Resolving]
  - Dyspnoea [Unknown]
  - Blister [Unknown]
  - Asthenia [Unknown]
  - Alopecia [Recovered/Resolved]
  - Impaired healing [Unknown]
  - Memory impairment [Unknown]
  - Decreased appetite [Unknown]
  - Depressed mood [Unknown]
  - Heart rate decreased [Not Recovered/Not Resolved]
  - Wound haemorrhage [Unknown]
  - Wrong technique in product usage process [Unknown]
